FAERS Safety Report 20378786 (Version 1)
Quarter: 2022Q1

REPORT INFORMATION
  Report Type: Spontaneous
  Country: US (occurrence: None)
  Receive Date: 20220125
  Receipt Date: 20220125
  Transmission Date: 20220423
  Serious: No
  Sender: FDA-Public Use
  Company Number: None

PATIENT
  Age: 59 Year
  Sex: Female
  Weight: 52.65 kg

DRUGS (5)
  1. SOTROVIMAB [Suspect]
     Active Substance: SOTROVIMAB
     Indication: COVID-19
  2. VITAMIN D3 [Concomitant]
     Active Substance: CHOLECALCIFEROL
  3. VITAMIN C [Concomitant]
     Active Substance: ASCORBIC ACID
  4. HERBALS [Concomitant]
     Active Substance: HERBALS
  5. ZINC [Concomitant]
     Active Substance: ZINC

REACTIONS (7)
  - Joint stiffness [None]
  - Gait disturbance [None]
  - Sinus headache [None]
  - Epistaxis [None]
  - Pain [None]
  - Feeling abnormal [None]
  - Malaise [None]

NARRATIVE: CASE EVENT DATE: 20220121
